FAERS Safety Report 14232026 (Version 1)
Quarter: 2017Q4

REPORT INFORMATION
  Report Type: Spontaneous
  Country: US (occurrence: US)
  Receive Date: 20171128
  Receipt Date: 20171128
  Transmission Date: 20180321
  Serious: No
  Sender: FDA-Public Use
  Company Number: US-LEADIANT BIOSCIENCES INC-2016STPI000984

PATIENT
  Sex: Male

DRUGS (11)
  1. MVI                                /01825701/ [Concomitant]
     Active Substance: VITAMINS
  2. THIOGUANINE [Concomitant]
     Active Substance: THIOGUANINE
  3. TURMERIC                           /01079602/ [Concomitant]
     Active Substance: HERBALS\TURMERIC
  4. GINGER                             /01646602/ [Concomitant]
  5. LOMUSTINE. [Concomitant]
     Active Substance: LOMUSTINE
  6. MATULANE [Suspect]
     Active Substance: PROCARBAZINE HYDROCHLORIDE
     Indication: BRAIN NEOPLASM MALIGNANT
     Dosage: 100 MG, Q6H
     Route: 048
     Dates: start: 20160623
  7. VITAMIN D                          /00107901/ [Concomitant]
     Active Substance: ERGOCALCIFEROL
  8. ZYRTEC [Concomitant]
     Active Substance: CETIRIZINE HYDROCHLORIDE
  9. PROBIOTIC                          /06395501/ [Concomitant]
     Active Substance: BIFIDOBACTERIUM ANIMALIS LACTIS
  10. SMZ-TMP DS [Concomitant]
     Active Substance: SULFAMETHOXAZOLE\TRIMETHOPRIM
  11. SULFAMETHOXAZOL                    /00025501/ [Concomitant]

REACTIONS (2)
  - Vomiting [Unknown]
  - Fatigue [Unknown]

NARRATIVE: CASE EVENT DATE: 2016
